FAERS Safety Report 4378923-1 (Version None)
Quarter: 2004Q2

REPORT INFORMATION
  Report Type: 
  Country: None (occurrence: None)
  Receive Date: 20040610
  Receipt Date: 20040601
  Transmission Date: 20050107
  Serious: Yes (Hospitalization)
  Sender: FDA-Public Use
  Company Number: 2004036785

PATIENT
  Age: 4 Year

DRUGS (2)
  1. ZITHROMAX [Suspect]
     Indication: PYREXIA
     Dosage: ORAL
     Route: 048
     Dates: start: 20040522, end: 20040524
  2. THEOPHYLLINE [Concomitant]

REACTIONS (2)
  - BRAIN OEDEMA [None]
  - CONVULSION [None]
